FAERS Safety Report 8058508-6 (Version None)
Quarter: 2012Q1

REPORT INFORMATION
  Report Type: 
  Country: None (occurrence: None)
  Receive Date: 20120120
  Receipt Date: 20120113
  Transmission Date: 20120608
  Serious: Yes (Hospitalization)
  Sender: FDA-Public Use
  Company Number: GB-UCBSA-049683

PATIENT
  Age: 63 Year
  Sex: Female
  Weight: 48.3 kg

DRUGS (3)
  1. HYDROCORTISONE [Concomitant]
     Dates: end: 20110801
  2. CERTOLIZUMAB [Suspect]
     Indication: RHEUMATOID ARTHRITIS
     Route: 058
     Dates: start: 20110510
  3. CHLORPHENIRAMINE MALEATE [Concomitant]
     Dates: end: 20110801

REACTIONS (1)
  - ANGIOEDEMA [None]
